FAERS Safety Report 14513349 (Version 2)
Quarter: 2018Q1

REPORT INFORMATION
  Report Type: Report from Study
  Country: JP (occurrence: JP)
  Receive Date: 20180209
  Receipt Date: 20180319
  Transmission Date: 20180509
  Serious: Yes (Death)
  Sender: FDA-Public Use
  Company Number: JP-PFIZER INC-2017401140

PATIENT
  Age: 74 Year
  Sex: Male
  Weight: 56.9 kg

DRUGS (3)
  1. PREDONINE [Concomitant]
     Active Substance: PREDNISOLONE
     Dosage: 5 MG, DAILY
     Route: 048
  2. XELJANZ [Suspect]
     Active Substance: TOFACITINIB CITRATE
     Indication: RHEUMATOID ARTHRITIS
     Dosage: 5 MG, 2X/DAY
     Route: 048
     Dates: start: 20170710
  3. RHEUMATREX [Concomitant]
     Active Substance: METHOTREXATE SODIUM
     Dosage: 14 MG, WEEKLY
     Route: 048
     Dates: end: 20170903

REACTIONS (2)
  - Neoplasm progression [Fatal]
  - Lung neoplasm malignant [Fatal]

NARRATIVE: CASE EVENT DATE: 20170816
